FAERS Safety Report 9602811 (Version 2)
Quarter: 2013Q4

REPORT INFORMATION
  Report Type: Spontaneous
  Country: US (occurrence: US)
  Receive Date: 20131007
  Receipt Date: 20131106
  Transmission Date: 20140711
  Serious: Yes (Other)
  Sender: FDA-Public Use
  Company Number: US-BAYER-2013-119860

PATIENT
  Age: 35 Year
  Sex: Female

DRUGS (1)
  1. MIRENA [Suspect]
     Indication: CONTRACEPTION
     Dosage: 20 MCG/24HR, CONT
     Route: 015
     Dates: start: 20120307, end: 20130822

REACTIONS (15)
  - Genital haemorrhage [Recovered/Resolved]
  - Anaemia [Recovering/Resolving]
  - Weight increased [Recovered/Resolved]
  - Back pain [Recovered/Resolved]
  - Pain in extremity [Recovered/Resolved]
  - Depressed mood [Recovered/Resolved]
  - Asthenia [Recovered/Resolved]
  - Acne [None]
  - Libido decreased [None]
  - Disturbance in attention [None]
  - Depression [None]
  - Decreased interest [None]
  - Asthenia [None]
  - Emotional disorder [None]
  - Presyncope [None]
